FAERS Safety Report 14969486 (Version 1)
Quarter: 2018Q2

REPORT INFORMATION
  Report Type: Spontaneous
  Country: US (occurrence: US)
  Receive Date: 20180511
  Receipt Date: 20180511
  Transmission Date: 20180711
  Serious: Yes (Hospitalization)
  Sender: FDA-Public Use
  Company Number: None

PATIENT
  Age: 87 Year
  Sex: Male

DRUGS (16)
  1. ROSUVASTATIN. [Concomitant]
     Active Substance: ROSUVASTATIN
  2. LOSARTAN POT [Concomitant]
     Active Substance: LOSARTAN POTASSIUM
  3. HYDRALAZINE [Concomitant]
     Active Substance: HYDRALAZINE HYDROCHLORIDE
  4. LEVOFLOXACIN. [Concomitant]
     Active Substance: LEVOFLOXACIN
  5. BD PEN NEEDL MS [Concomitant]
  6. DULOXETINE. [Concomitant]
     Active Substance: DULOXETINE
  7. NADOLOL. [Concomitant]
     Active Substance: NADOLOL
  8. MEMANTINE. [Concomitant]
     Active Substance: MEMANTINE
  9. METHOTREXATE. [Concomitant]
     Active Substance: METHOTREXATE
  10. MEMANTINE. [Concomitant]
     Active Substance: MEMANTINE
  11. ENBREL [Suspect]
     Active Substance: ETANERCEPT
     Indication: RHEUMATOID ARTHRITIS
     Route: 058
     Dates: start: 20140522
  12. AMLODIPINE [Concomitant]
     Active Substance: AMLODIPINE BESYLATE
  13. ATENOLOL. [Concomitant]
     Active Substance: ATENOLOL
  14. KETOCONAZOLE CREAM [Concomitant]
     Active Substance: KETOCONAZOLE
  15. DONEZEPIL [Concomitant]
     Active Substance: DONEPEZIL
  16. FOLIC ACID. [Concomitant]
     Active Substance: FOLIC ACID

REACTIONS (1)
  - Drug dose omission [None]

NARRATIVE: CASE EVENT DATE: 2018
